FAERS Safety Report 7109037-5 (Version None)
Quarter: 2010Q4

REPORT INFORMATION
  Report Type: 
  Country: None (occurrence: None)
  Receive Date: 20101117
  Receipt Date: 20101110
  Transmission Date: 20110411
  Serious: Yes (Death)
  Sender: FDA-Public Use
  Company Number: JP-BAXTER-2010BH028268

PATIENT
  Age: 46 Year
  Sex: Male

DRUGS (7)
  1. CYCLOPHOSPHAMIDE [Suspect]
     Indication: ACUTE BIPHENOTYPIC LEUKAEMIA
     Route: 065
  2. CYCLOPHOSPHAMIDE [Suspect]
     Indication: STEM CELL TRANSPLANT
     Route: 065
  3. VINCRISTINE SULFATE [Suspect]
     Indication: ACUTE BIPHENOTYPIC LEUKAEMIA
     Route: 065
  4. DOXORUBICIN HCL [Suspect]
     Indication: ACUTE BIPHENOTYPIC LEUKAEMIA
     Route: 065
  5. DEXAMETHASONE [Suspect]
     Indication: ACUTE BIPHENOTYPIC LEUKAEMIA
     Route: 065
  6. GEMTUZUMAB OZOGAMICIN [Suspect]
     Indication: ACUTE BIPHENOTYPIC LEUKAEMIA
     Route: 065
  7. RADIOTHERAPY [Suspect]
     Indication: ACUTE BIPHENOTYPIC LEUKAEMIA
     Route: 065

REACTIONS (1)
  - CEREBRAL HAEMORRHAGE [None]
